FAERS Safety Report 15934899 (Version 1)
Quarter: 2019Q1

REPORT INFORMATION
  Report Type: Report from Study
  Country: None (occurrence: JP)
  Receive Date: 20190207
  Receipt Date: 20190207
  Transmission Date: 20190417
  Serious: Yes (Other)
  Sender: FDA-Public Use
  Company Number: JP-TEVA-2019-JP-1007506

PATIENT

DRUGS (4)
  1. METHOTREXATE. [Suspect]
     Active Substance: METHOTREXATE
     Indication: BLADDER CANCER
     Dosage: TRI-WEEKLY MODIFIED NEOADJUVANT CHEMOTHERAPY ON DAY 1
     Route: 065
  2. DOXORUBICIN [Suspect]
     Active Substance: DOXORUBICIN
     Indication: BLADDER CANCER
     Dosage: TRI-WEEKLY MODIFIED NEOADJUVANT CHEMOTHERAPY ON DAY 2
     Route: 065
  3. VINBLASTINE [Suspect]
     Active Substance: VINBLASTINE
     Indication: BLADDER CANCER
     Dosage: TRI-WEEKLY MODIFIED NEOADJUVANT CHEMOTHERAPY ON DAY 2
     Route: 065
  4. CISPLATIN. [Suspect]
     Active Substance: CISPLATIN
     Indication: BLADDER CANCER
     Dosage: TRI-WEEKLY MODIFIED NEOADJUVANT CHEMOTHERAPY ON DAY 2
     Route: 065

REACTIONS (1)
  - Renal impairment [Unknown]
